FAERS Safety Report 10247319 (Version 2)
Quarter: 2014Q3

REPORT INFORMATION
  Report Type: Spontaneous
  Country: US (occurrence: US)
  Receive Date: 20140619
  Receipt Date: 20140729
  Transmission Date: 20150326
  Serious: No
  Sender: FDA-Public Use
  Company Number: US-PFIZER INC-2014166919

PATIENT
  Age: 83 Year
  Sex: Female
  Weight: 79.4 kg

DRUGS (3)
  1. AVALIDE [Concomitant]
     Active Substance: HYDROCHLOROTHIAZIDE\IRBESARTAN
     Indication: HYPERTENSION
     Dosage: 300 MG, 1X/DAY
  2. ESTRING [Suspect]
     Active Substance: ESTRADIOL
     Indication: CYSTITIS
     Dosage: UNK
     Route: 067
     Dates: start: 201405, end: 201406
  3. ESTRING [Suspect]
     Active Substance: ESTRADIOL
     Indication: BLADDER PROLAPSE
     Dosage: UNK
     Route: 067

REACTIONS (3)
  - Breast discomfort [Unknown]
  - Vaginal infection [Unknown]
  - Off label use [Unknown]

NARRATIVE: CASE EVENT DATE: 201405
